FAERS Safety Report 11221664 (Version 1)
Quarter: 2015Q2

REPORT INFORMATION
  Report Type: Spontaneous
  Country: US (occurrence: None)
  Receive Date: 20150625
  Receipt Date: 20150625
  Transmission Date: 20150821
  Serious: No
  Sender: FDA-Public Use
  Company Number: None

PATIENT
  Age: 66 Day
  Sex: Male
  Weight: 102.06 kg

DRUGS (17)
  1. NOVOLOG [Concomitant]
     Active Substance: INSULIN ASPART
  2. ATORVASTATIN [Concomitant]
     Active Substance: ATORVASTATIN
  3. METANX CAP [Concomitant]
  4. APRISO/ASACOL [Concomitant]
  5. CILOSTAZOL. [Concomitant]
     Active Substance: CILOSTAZOL
  6. AXIRON [Concomitant]
     Active Substance: TESTOSTERONE
  7. LEVEMIRE [Concomitant]
  8. POTASSIUM [Concomitant]
     Active Substance: POTASSIUM
  9. APRISO [Suspect]
     Active Substance: MESALAMINE
     Indication: COLITIS ULCERATIVE
     Dosage: 3 PILLS PER DAY THREE TIMES DAILY TAKEN BY MOUTH
     Route: 048
     Dates: start: 20150601, end: 20150624
  10. NUVIGIL [Concomitant]
     Active Substance: ARMODAFINIL
  11. OXYCODONE ACETAMIN OPHEN [Concomitant]
  12. CHLORDIAZEPOXIDE CLIDINIUM [Concomitant]
     Active Substance: CHLORDIAZEPOXIDE HYDROCHLORIDE\CLIDINIUM BROMIDE
  13. SYNTHROID [Concomitant]
     Active Substance: LEVOTHYROXINE SODIUM
  14. FUROSEMIDE. [Concomitant]
     Active Substance: FUROSEMIDE
  15. MULTI DAILY VITIMIN [Concomitant]
  16. VICTOZA [Concomitant]
     Active Substance: LIRAGLUTIDE
  17. DIPHEN/ATROPINE [Concomitant]

REACTIONS (3)
  - Contraindication to medical treatment [None]
  - Abdominal pain upper [None]
  - Diarrhoea [None]

NARRATIVE: CASE EVENT DATE: 20150624
